FAERS Safety Report 8922271 (Version 2)
Quarter: 2013Q1

REPORT INFORMATION
  Report Type: Spontaneous
  Country: AU (occurrence: AU)
  Receive Date: 20121123
  Receipt Date: 20130103
  Transmission Date: 20140127
  Serious: Yes (Death, Hospitalization, Other)
  Sender: FDA-Public Use
  Company Number: AU-B.I. PHARMACEUTICALS,INC./RIDGEFIELD-2012-AU-01888AU

PATIENT
  Age: 69 None
  Sex: Male
  Weight: 76.5 kg

DRUGS (22)
  1. PRADAXA [Suspect]
     Indication: ATRIAL FIBRILLATION
     Dosage: 300 MG
     Dates: start: 20110915, end: 201205
  2. ACCOMIN [Concomitant]
     Dosage: 10 ML MANE
     Route: 048
  3. ANGININE [Concomitant]
     Dosage: 1 PRN
     Route: 048
  4. ATROVENT [Concomitant]
     Route: 055
  5. CHLORVESCENT [Concomitant]
     Route: 048
  6. DIGOXIN [Concomitant]
     Route: 048
  7. GAVISCON [Concomitant]
     Dosage: 15 ML PRN
     Route: 048
  8. MAXOLON [Concomitant]
     Dosage: 1 PRN
     Route: 048
  9. MEGAFOL [Concomitant]
     Dosage: MDU
     Route: 048
  10. METOPROLOL [Concomitant]
     Dosage: HALF A TABLET NOCTE, QUARTER MANE
     Route: 048
  11. MOTILIUM [Concomitant]
     Dosage: 10 MG
     Route: 048
  12. MOVICOL [Concomitant]
     Dosage: MDU
     Route: 048
  13. NOROXIN [Concomitant]
     Dosage: 800 MG
     Route: 048
  14. ORDINE [Concomitant]
     Dosage: 2 MG/ML TDS
     Route: 048
  15. OSMOLAX [Concomitant]
     Dosage: MDU
     Route: 048
  16. OXYCONTIN [Concomitant]
     Dosage: 10 MG
     Route: 048
  17. PANADOL OSTEO [Concomitant]
     Dosage: 3990 MG
     Route: 048
  18. PULMICORT [Concomitant]
     Dosage: BD
     Route: 055
  19. SOMAC [Concomitant]
     Dosage: 80 MG
     Route: 048
  20. SPIRIVA [Concomitant]
     Dosage: 18 MCG
     Route: 055
  21. UREMIDE [Concomitant]
     Dosage: 1 MANE AND HALF A TABLET MIDI
     Route: 048
  22. ZOFRAN [Concomitant]
     Dosage: 1 PRN
     Route: 048

REACTIONS (10)
  - Pneumonia [Fatal]
  - Respiratory distress [Unknown]
  - Pancytopenia [Unknown]
  - Colitis [Unknown]
  - Diarrhoea [Unknown]
  - Constipation [Unknown]
  - Pyrexia [Unknown]
  - Dyspnoea [Unknown]
  - Cough [Unknown]
  - Oedema peripheral [Unknown]
